FAERS Safety Report 6478402-1 (Version None)
Quarter: 2009Q4

REPORT INFORMATION
  Report Type: 
  Country: None (occurrence: None)
  Receive Date: 20091207
  Receipt Date: 20091203
  Transmission Date: 20100525
  Serious: Yes (Death, Other)
  Sender: FDA-Public Use
  Company Number: PHEH2009US17176

PATIENT
  Sex: Female

DRUGS (1)
  1. RECLAST [Suspect]
     Dosage: UNK

REACTIONS (5)
  - CONFUSIONAL STATE [None]
  - INFLUENZA LIKE ILLNESS [None]
  - RENAL FAILURE [None]
  - RETCHING [None]
  - WEIGHT DECREASED [None]
